FAERS Safety Report 10070081 (Version 1)
Quarter: 2014Q2

REPORT INFORMATION
  Report Type: Spontaneous
  Country: PH (occurrence: None)
  Receive Date: 20140408
  Receipt Date: 20140408
  Transmission Date: 20141212
  Serious: Yes (Death)
  Sender: FDA-Public Use
  Company Number: FK201401230

PATIENT
  Age: 32 Year
  Sex: Female

DRUGS (1)
  1. PROPOFOL [Suspect]
     Indication: LAPAROSCOPIC SURGERY
     Dosage: 50 ML, INTRAVENOUS (NOT OTHERWISE SPECIFIED)
     Route: 042
     Dates: start: 20131228, end: 20131228

REACTIONS (6)
  - Sepsis [None]
  - Shock [None]
  - Malaise [None]
  - Fatigue [None]
  - Abdominal pain [None]
  - Blood pressure decreased [None]
